FAERS Safety Report 13057203 (Version 1)
Quarter: 2016Q4

REPORT INFORMATION
  Report Type: Report from Study
  Country: US (occurrence: US)
  Receive Date: 20161223
  Receipt Date: 20161223
  Transmission Date: 20170207
  Serious: No
  Sender: FDA-Public Use
  Company Number: US-AMGEN-USASL2016179294

PATIENT
  Age: 74 Year
  Sex: Female

DRUGS (7)
  1. METHOTREXATE. [Concomitant]
     Active Substance: METHOTREXATE
     Dosage: 2.5 MG, QWK
  2. FOLIC ACID. [Concomitant]
     Active Substance: FOLIC ACID
     Dosage: 1 MG, QD
  3. SYNTHROID [Concomitant]
     Active Substance: LEVOTHYROXINE SODIUM
     Dosage: 75 MUG, 5 TIMES/WK
  4. ENBREL [Suspect]
     Active Substance: ETANERCEPT
     Indication: SPONDYLOARTHROPATHY
     Dosage: 50 MG, UNK
     Route: 065
     Dates: start: 200403
  5. VITAMIN D [Concomitant]
     Active Substance: CHOLECALCIFEROL
     Dosage: 50 UNIT, QMO
  6. CALCIUM [Concomitant]
     Active Substance: CALCIUM
  7. FISH OIL [Concomitant]
     Active Substance: FISH OIL

REACTIONS (2)
  - Off label use [Unknown]
  - Wrong technique in product usage process [Unknown]

NARRATIVE: CASE EVENT DATE: 200403
